FAERS Safety Report 12084187 (Version 1)
Quarter: 2016Q1

REPORT INFORMATION
  Report Type: Spontaneous
  Country: US (occurrence: None)
  Receive Date: 20160216
  Receipt Date: 20160216
  Transmission Date: 20160526
  Serious: No
  Sender: FDA-Public Use
  Company Number: None

PATIENT
  Age: 63 Year
  Sex: Female

DRUGS (2)
  1. DITROPAN [Suspect]
     Active Substance: OXYBUTYNIN CHLORIDE
  2. SANCTURA [Suspect]
     Active Substance: TROSPIUM CHLORIDE

REACTIONS (3)
  - Nausea [None]
  - Abdominal pain upper [None]
  - Drug ineffective [None]
